FAERS Safety Report 4952794-4 (Version None)
Quarter: 2006Q1

REPORT INFORMATION
  Report Type: 
  Country: None (occurrence: None)
  Receive Date: 20060320
  Receipt Date: 20060307
  Transmission Date: 20060701
  Serious: Yes (Other)
  Sender: FDA-Public Use
  Company Number: 2006033674

PATIENT
  Sex: Female

DRUGS (5)
  1. LIPITOR [Suspect]
     Indication: BLOOD CHOLESTEROL
     Dosage: 10 MG (20 MG, 1 IN 1 D), ORAL
     Route: 048
     Dates: start: 19970101
  2. METOPROLOL [Concomitant]
  3. CYCLOBENZAPRINE [Concomitant]
  4. ACETYLSALICYLIC ACID SRT [Concomitant]
  5. ACTONEL [Concomitant]

REACTIONS (3)
  - ACTIVITIES OF DAILY LIVING IMPAIRED [None]
  - MUSCULAR WEAKNESS [None]
  - MYOCARDIAL INFARCTION [None]
